FAERS Safety Report 8469406-8 (Version None)
Quarter: 2012Q2

REPORT INFORMATION
  Report Type: 
  Country: None (occurrence: None)
  Receive Date: 20120626
  Receipt Date: 20120613
  Transmission Date: 20120825
  Serious: Yes (Hospitalization)
  Sender: FDA-Public Use
  Company Number: US-ROCHE-1078478

PATIENT
  Sex: Male
  Weight: 74.002 kg

DRUGS (2)
  1. COUMADIN [Concomitant]
     Route: 048
  2. XELODA [Suspect]
     Indication: GASTRIC CANCER
     Route: 048
     Dates: start: 20120420, end: 20120603

REACTIONS (5)
  - HOSPITALISATION [None]
  - DYSARTHRIA [None]
  - CONFUSIONAL STATE [None]
  - HYPOTENSION [None]
  - GASTRIC HAEMORRHAGE [None]
